FAERS Safety Report 19747661 (Version 10)
Quarter: 2022Q2

REPORT INFORMATION
  Report Type: Spontaneous
  Country: BR (occurrence: BR)
  Receive Date: 20210825
  Receipt Date: 20220411
  Transmission Date: 20220721
  Serious: Yes (Other)
  Sender: FDA-Public Use
  Company Number: NVSC2021BR189715

PATIENT
  Age: 59 Year
  Sex: Male
  Weight: 63 kg

DRUGS (15)
  1. METHYLPHENIDATE HYDROCHLORIDE [Suspect]
     Active Substance: METHYLPHENIDATE HYDROCHLORIDE
     Indication: Attention deficit hyperactivity disorder
     Dosage: 1 DOSAGE FORM, QD  (STARTED 2 YEAR AGO AND AND STOPPED 1 OR 1.5 YEAR AGO)
     Route: 065
  2. METHYLPHENIDATE HYDROCHLORIDE [Suspect]
     Active Substance: METHYLPHENIDATE HYDROCHLORIDE
     Dosage: UNK
     Route: 065
     Dates: start: 20211021
  3. METHYLPHENIDATE HYDROCHLORIDE [Suspect]
     Active Substance: METHYLPHENIDATE HYDROCHLORIDE
     Dosage: 1 DOSAGE FORM, (6,8 OR 10 TABLETS A DAY. STARTED 2 YEARS AGO)
     Route: 048
     Dates: end: 202106
  4. METHYLPHENIDATE HYDROCHLORIDE [Suspect]
     Active Substance: METHYLPHENIDATE HYDROCHLORIDE
     Dosage: 1 DOSAGE FORM (AFTER LUNCH)
     Route: 048
     Dates: start: 202106
  5. METHYLPHENIDATE HYDROCHLORIDE [Suspect]
     Active Substance: METHYLPHENIDATE HYDROCHLORIDE
     Indication: Attention deficit hyperactivity disorder
     Dosage: 20 MG
     Route: 065
  6. METHYLPHENIDATE HYDROCHLORIDE [Suspect]
     Active Substance: METHYLPHENIDATE HYDROCHLORIDE
     Dosage: 40 MG, QD
     Route: 048
     Dates: start: 202108
  7. METHYLPHENIDATE HYDROCHLORIDE [Suspect]
     Active Substance: METHYLPHENIDATE HYDROCHLORIDE
     Dosage: 20 MG, QD
     Route: 048
     Dates: end: 202108
  8. METHYLPHENIDATE HYDROCHLORIDE [Suspect]
     Active Substance: METHYLPHENIDATE HYDROCHLORIDE
     Dosage: 40 MG (STARTED 3 MONTHS AGO)
     Route: 065
  9. METHYLPHENIDATE HYDROCHLORIDE [Suspect]
     Active Substance: METHYLPHENIDATE HYDROCHLORIDE
     Dosage: 20 MG, (STARTED 3 MONTHS AGO)
     Route: 065
  10. METHYLPHENIDATE HYDROCHLORIDE [Suspect]
     Active Substance: METHYLPHENIDATE HYDROCHLORIDE
     Dosage: 1 DOSAGE FORM, QD (IN MORNING)
     Route: 048
     Dates: start: 202106
  11. ESCITALOPRAM [Suspect]
     Active Substance: ESCITALOPRAM OXALATE
     Indication: Depression
     Dosage: 1 DOSAGE FORM, QD (STARTED 1 YEAR AND A HALF)
     Route: 048
  12. GLIMEPIRIDE\METFORMIN [Concomitant]
     Active Substance: GLIMEPIRIDE\METFORMIN
     Indication: Diabetes mellitus
     Dosage: 1 DOSAGE FORM, QD (STARTED FROM 3 YEARS AGO)
     Route: 048
  13. GLYPHAGEN [Concomitant]
     Indication: Diabetes mellitus
     Dosage: 1 DOSAGE FORM, BID (STARTED FROM 3 YEARS AGO)
     Route: 048
  14. BUPROPION [Concomitant]
     Active Substance: BUPROPION
     Indication: Depression
     Dosage: 1 DOSAGE FORM, BID (STARTED 1 YEAR AND A HALF)
     Route: 048
  15. LISDEXAMFETAMINE DIMESYLATE [Concomitant]
     Active Substance: LISDEXAMFETAMINE DIMESYLATE
     Indication: Attention deficit hyperactivity disorder
     Dosage: 1 DOSAGE FORM, QD (ONLY IN WEEKEND)
     Route: 048
     Dates: start: 202106

REACTIONS (20)
  - Drug dependence [Recovering/Resolving]
  - Hepatitis C [Recovered/Resolved]
  - Attention deficit hyperactivity disorder [Unknown]
  - Depression [Recovered/Resolved]
  - Diabetes mellitus [Unknown]
  - Hemianopia [Not Recovered/Not Resolved]
  - Ocular icterus [Recovered/Resolved]
  - Tinnitus [Not Recovered/Not Resolved]
  - Muscle mass [Not Recovered/Not Resolved]
  - Wheezing [Recovered/Resolved]
  - Feeling abnormal [Recovered/Resolved]
  - Erythema [Recovered/Resolved]
  - Weight increased [Not Recovered/Not Resolved]
  - Headache [Recovered/Resolved]
  - Hypoacusis [Unknown]
  - Psychomotor hyperactivity [Unknown]
  - Visual impairment [Recovered/Resolved]
  - Wrong technique in product usage process [Recovered/Resolved]
  - Overdose [Recovered/Resolved]
  - Drug ineffective [Not Recovered/Not Resolved]

NARRATIVE: CASE EVENT DATE: 20210101
